FAERS Safety Report 8518206-9 (Version None)
Quarter: 2012Q3

REPORT INFORMATION
  Report Type: 
  Country: None (occurrence: None)
  Receive Date: 20120718
  Receipt Date: 20111107
  Transmission Date: 20120928
  Serious: No
  Sender: FDA-Public Use
  Company Number: US-BRISTOL-MYERS SQUIBB COMPANY-16219305

PATIENT
  Age: 86 Year
  Sex: Female

DRUGS (7)
  1. VERAPAMIL [Concomitant]
  2. OMEPRAZOLE [Concomitant]
  3. LIPITOR [Concomitant]
  4. HYDROCHLOROTHIAZIDE [Concomitant]
  5. COUMADIN [Suspect]
     Route: 065
  6. FERROUS SULFATE TAB [Suspect]
     Indication: ANAEMIA
     Dosage: 1DF:1 TABLET
     Route: 048
     Dates: start: 20110824
  7. SYNTHROID [Concomitant]

REACTIONS (1)
  - PROTHROMBIN LEVEL DECREASED [None]
